APPROVED DRUG PRODUCT: COPIKTRA
Active Ingredient: DUVELISIB
Strength: 25MG
Dosage Form/Route: CAPSULE;ORAL
Application: N211155 | Product #002
Applicant: SECURA BIO INC
Approved: Sep 24, 2018 | RLD: Yes | RS: No | Type: RX

PATENTS:
Patent 9216982 | Expires: Jan 5, 2029
Patent 9840505 | Expires: Jan 10, 2032
Patent 9216982 | Expires: Jan 5, 2029
Patent 9840505 | Expires: Jan 10, 2032
Patent 12213983 | Expires: Apr 26, 2035
Patent 11312718 | Expires: Jan 10, 2032
Patent RE46621 | Expires: May 17, 2032
Patent 8193182 | Expires: Feb 13, 2030